FAERS Safety Report 13081447 (Version 1)
Quarter: 2017Q1

REPORT INFORMATION
  Report Type: Spontaneous
  Country: US (occurrence: US)
  Receive Date: 20170103
  Receipt Date: 20170103
  Transmission Date: 20170428
  Serious: No
  Sender: FDA-Public Use
  Company Number: US-TEVA-718255USA

PATIENT
  Sex: Female

DRUGS (1)
  1. QVAR [Suspect]
     Active Substance: BECLOMETHASONE DIPROPIONATE

REACTIONS (4)
  - Oral discomfort [Unknown]
  - Vulvovaginal pain [Unknown]
  - Vulvovaginal mycotic infection [Unknown]
  - Oropharyngeal pain [Unknown]
